FAERS Safety Report 22020422 (Version 2)
Quarter: 2023Q1

REPORT INFORMATION
  Report Type: Report from Study
  Country: US (occurrence: US)
  Receive Date: 20230222
  Receipt Date: 20230227
  Transmission Date: 20230417
  Serious: Yes (Hospitalization)
  Sender: FDA-Public Use
  Company Number: US-GLAXOSMITHKLINE-US2023GSK011456

PATIENT

DRUGS (52)
  1. CARBOPLATIN [Suspect]
     Active Substance: CARBOPLATIN
     Indication: Endometrial cancer
     Dosage: UNK
  2. CARBOPLATIN [Suspect]
     Active Substance: CARBOPLATIN
     Indication: Endometrial cancer
     Dosage: UNK
  3. DOSTARLIMAB [Suspect]
     Active Substance: DOSTARLIMAB
     Indication: Endometrial cancer
     Dosage: UNK
  4. NIRAPARIB [Suspect]
     Active Substance: NIRAPARIB
     Indication: Endometrial cancer
     Dosage: UNK
  5. PACLITAXEL [Suspect]
     Active Substance: PACLITAXEL
     Indication: Endometrial cancer
     Dosage: UNK
  6. PACLITAXEL [Suspect]
     Active Substance: PACLITAXEL
     Indication: Endometrial cancer
     Dosage: UNK
  7. PLACEBO [Suspect]
     Active Substance: UNSPECIFIED INGREDIENT
     Indication: Endometrial cancer
     Dosage: UNK
  8. PLACEBO [Suspect]
     Active Substance: UNSPECIFIED INGREDIENT
     Indication: Endometrial cancer
     Dosage: UNK
  9. CARBOPLATIN [Suspect]
     Active Substance: CARBOPLATIN
     Dosage: 1000 MG
     Dates: start: 20221227, end: 20221227
  10. CARBOPLATIN [Suspect]
     Active Substance: CARBOPLATIN
     Dosage: 1000 MG
     Dates: start: 20221227, end: 20221227
  11. DOSTARLIMAB [Suspect]
     Active Substance: DOSTARLIMAB
     Dosage: 1000 MG
     Dates: start: 20221227, end: 20221227
  12. NIRAPARIB [Suspect]
     Active Substance: NIRAPARIB
     Dosage: 1000 MG
     Dates: start: 20221227, end: 20221227
  13. PACLITAXEL [Suspect]
     Active Substance: PACLITAXEL
     Dosage: 1000 MG
     Dates: start: 20221227, end: 20221227
  14. PACLITAXEL [Suspect]
     Active Substance: PACLITAXEL
     Dosage: 1000 MG
     Dates: start: 20221227, end: 20221227
  15. PLACEBO [Suspect]
     Active Substance: UNSPECIFIED INGREDIENT
     Dosage: 1000 MG
     Dates: start: 20221227, end: 20221227
  16. PLACEBO [Suspect]
     Active Substance: UNSPECIFIED INGREDIENT
     Dosage: 1000 MG
     Dates: start: 20221227, end: 20221227
  17. NIRAPARIB [Suspect]
     Active Substance: NIRAPARIB
     Indication: Endometrial cancer
     Dosage: UNK
  18. NIRAPARIB [Suspect]
     Active Substance: NIRAPARIB
     Dosage: 200 MG
     Dates: end: 20230116
  19. NIRAPARIB [Suspect]
     Active Substance: NIRAPARIB
     Dosage: 100 MG
     Dates: start: 20230213
  20. CARBOPLATIN [Suspect]
     Active Substance: CARBOPLATIN
     Indication: Endometrial cancer
     Dosage: UNK
     Route: 042
  21. CARBOPLATIN [Suspect]
     Active Substance: CARBOPLATIN
     Indication: Endometrial cancer
     Dosage: UNK
     Route: 042
  22. DOSTARLIMAB [Suspect]
     Active Substance: DOSTARLIMAB
     Indication: Endometrial cancer
     Dosage: UNK
     Route: 042
  23. NIRAPARIB [Suspect]
     Active Substance: NIRAPARIB
     Indication: Endometrial cancer
     Dosage: UNK
     Route: 042
  24. PACLITAXEL [Suspect]
     Active Substance: PACLITAXEL
     Indication: Endometrial cancer
     Dosage: UNK
     Route: 042
  25. PACLITAXEL [Suspect]
     Active Substance: PACLITAXEL
     Indication: Endometrial cancer
     Dosage: UNK
     Route: 042
  26. PLACEBO [Suspect]
     Active Substance: UNSPECIFIED INGREDIENT
     Indication: Endometrial cancer
     Dosage: UNK
     Route: 042
  27. PLACEBO [Suspect]
     Active Substance: UNSPECIFIED INGREDIENT
     Indication: Endometrial cancer
     Dosage: UNK
     Route: 042
  28. CARBOPLATIN [Suspect]
     Active Substance: CARBOPLATIN
     Dosage: 390 MG
     Route: 042
     Dates: start: 20220621, end: 20220621
  29. CARBOPLATIN [Suspect]
     Active Substance: CARBOPLATIN
     Dosage: 390 MG
     Route: 042
     Dates: start: 20220621, end: 20220621
  30. DOSTARLIMAB [Suspect]
     Active Substance: DOSTARLIMAB
     Dosage: 390 MG
     Route: 042
     Dates: start: 20220621, end: 20220621
  31. NIRAPARIB [Suspect]
     Active Substance: NIRAPARIB
     Dosage: 390 MG
     Route: 042
     Dates: start: 20220621, end: 20220621
  32. PACLITAXEL [Suspect]
     Active Substance: PACLITAXEL
     Dosage: 390 MG
     Route: 042
     Dates: start: 20220621, end: 20220621
  33. PACLITAXEL [Suspect]
     Active Substance: PACLITAXEL
     Dosage: 390 MG
     Route: 042
     Dates: start: 20220621, end: 20220621
  34. PLACEBO [Suspect]
     Active Substance: UNSPECIFIED INGREDIENT
     Dosage: 390 MG
     Route: 042
     Dates: start: 20220621, end: 20220621
  35. PLACEBO [Suspect]
     Active Substance: UNSPECIFIED INGREDIENT
     Dosage: 390 MG
     Route: 042
     Dates: start: 20220621, end: 20220621
  36. CARBOPLATIN [Suspect]
     Active Substance: CARBOPLATIN
     Indication: Endometrial cancer
     Dosage: UNK
     Route: 042
  37. CARBOPLATIN [Suspect]
     Active Substance: CARBOPLATIN
     Indication: Endometrial cancer
     Dosage: UNK
     Route: 042
  38. DOSTARLIMAB [Suspect]
     Active Substance: DOSTARLIMAB
     Indication: Endometrial cancer
     Dosage: UNK
     Route: 042
  39. NIRAPARIB [Suspect]
     Active Substance: NIRAPARIB
     Indication: Endometrial cancer
     Dosage: UNK
     Route: 042
  40. PACLITAXEL [Suspect]
     Active Substance: PACLITAXEL
     Indication: Endometrial cancer
     Dosage: UNK
     Route: 042
  41. PACLITAXEL [Suspect]
     Active Substance: PACLITAXEL
     Indication: Endometrial cancer
     Dosage: UNK
     Route: 042
  42. PLACEBO [Suspect]
     Active Substance: UNSPECIFIED INGREDIENT
     Indication: Endometrial cancer
     Dosage: UNK
     Route: 042
  43. PLACEBO [Suspect]
     Active Substance: UNSPECIFIED INGREDIENT
     Indication: Endometrial cancer
     Dosage: UNK
     Route: 042
  44. CARBOPLATIN [Suspect]
     Active Substance: CARBOPLATIN
     Dosage: 312 MG/M2
     Route: 042
     Dates: start: 20220531, end: 20220531
  45. CARBOPLATIN [Suspect]
     Active Substance: CARBOPLATIN
     Dosage: 312 MG/M2
     Route: 042
     Dates: start: 20220531, end: 20220531
  46. DOSTARLIMAB [Suspect]
     Active Substance: DOSTARLIMAB
     Dosage: 312 MG/M2
     Route: 042
     Dates: start: 20220531, end: 20220531
  47. NIRAPARIB [Suspect]
     Active Substance: NIRAPARIB
     Dosage: 312 MG/M2
     Route: 042
     Dates: start: 20220531, end: 20220531
  48. PACLITAXEL [Suspect]
     Active Substance: PACLITAXEL
     Dosage: 312 MG/M2
     Route: 042
     Dates: start: 20220531, end: 20220531
  49. PACLITAXEL [Suspect]
     Active Substance: PACLITAXEL
     Dosage: 312 MG/M2
     Route: 042
     Dates: start: 20220531, end: 20220531
  50. PLACEBO [Suspect]
     Active Substance: UNSPECIFIED INGREDIENT
     Dosage: 312 MG/M2
     Route: 042
     Dates: start: 20220531, end: 20220531
  51. PLACEBO [Suspect]
     Active Substance: UNSPECIFIED INGREDIENT
     Dosage: 312 MG/M2
     Route: 042
     Dates: start: 20220531, end: 20220531
  52. VANCOMYCIN [Suspect]
     Active Substance: VANCOMYCIN
     Indication: Sepsis
     Dosage: UNK

REACTIONS (2)
  - Sepsis [Recovered/Resolved]
  - Vancomycin infusion reaction [Recovered/Resolved]

NARRATIVE: CASE EVENT DATE: 20230117
